FAERS Safety Report 5009807-3 (Version None)
Quarter: 2006Q2

REPORT INFORMATION
  Report Type: 
  Country: None (occurrence: None)
  Receive Date: 20060522
  Receipt Date: 20060505
  Transmission Date: 20061013
  Serious: Yes (Hospitalization)
  Sender: FDA-Public Use
  Company Number: 225243

PATIENT
  Age: 74 Year
  Sex: Female
  Weight: 88 kg

DRUGS (8)
  1. AVASTIN [Suspect]
     Indication: COLORECTAL CANCER METASTATIC
     Dosage: 440 MG, Q2W, INTRAVENOUS
     Route: 042
     Dates: start: 20050812, end: 20060214
  2. IRINOTECAN HCL [Concomitant]
  3. FLUOROURACIL [Concomitant]
  4. LEUCOVORIN CALCIUM [Concomitant]
  5. RAMIPRIL [Concomitant]
  6. BISOPROLOL FUMARATE [Concomitant]
  7. LORAZEPAM [Concomitant]
  8. LIPTOR (ATORVASTATIN CALCIUM) [Concomitant]

REACTIONS (3)
  - CONFUSIONAL STATE [None]
  - PERIANAL ABSCESS [None]
  - PNEUMONIA [None]
